FAERS Safety Report 17739396 (Version 1)
Quarter: 2020Q2

REPORT INFORMATION
  Report Type: Spontaneous
  Country: US (occurrence: US)
  Receive Date: 20200501
  Receipt Date: 20200501
  Transmission Date: 20200714
  Serious: Yes (Life-Threatening, Hospitalization, Disabling)
  Sender: FDA-Public Use
  Company Number: None

PATIENT

DRUGS (15)
  1. LOSARTAN. [Concomitant]
     Active Substance: LOSARTAN
  2. TIZANIDINE HCL [Concomitant]
     Active Substance: TIZANIDINE HYDROCHLORIDE
  3. SILDENAFIL. [Concomitant]
     Active Substance: SILDENAFIL
  4. NORTRIPTYLINE HCL [Concomitant]
     Active Substance: NORTRIPTYLINE HYDROCHLORIDE
  5. TELENOL [Concomitant]
  6. FLUTICASONE PROPIONATE NASAL SPRAY [Concomitant]
     Active Substance: FLUTICASONE PROPIONATE
  7. HYDROCODONE/ACETAMINOPHEN [Concomitant]
     Active Substance: ACETAMINOPHEN\HYDROCODONE
  8. DUTASTERIDE-TAMSULOSIN [Concomitant]
  9. B12 1000 MG SUBLINGUAL [Concomitant]
  10. MOTOPROLOLSUCCER [Concomitant]
  11. PRAVASTATIN SODIUM. [Concomitant]
     Active Substance: PRAVASTATIN SODIUM
  12. LYRICA [Concomitant]
     Active Substance: PREGABALIN
  13. LIDOCAINE OINTMENT [Concomitant]
     Active Substance: LIDOCAINE
  14. VALSARTAN AND HYDROCHLOROTHIAZIDE TABLET 80 MG/12.5 MG, [Suspect]
     Active Substance: HYDROCHLOROTHIAZIDE\VALSARTAN
     Indication: HYPERTENSION
     Dosage: ?          OTHER STRENGTH:80-12.5;QUANTITY:30/90;?
     Route: 048
     Dates: start: 20130719, end: 20180724
  15. LOW DOSE ASPIRIN [Concomitant]
     Active Substance: ASPIRIN

REACTIONS (3)
  - Clear cell renal cell carcinoma [None]
  - Abdominal pain upper [None]
  - Kidney infection [None]

NARRATIVE: CASE EVENT DATE: 20191107
